APPROVED DRUG PRODUCT: TOFACITINIB CITRATE
Active Ingredient: TOFACITINIB CITRATE
Strength: EQ 10MG BASE 
Dosage Form/Route: TABLET;ORAL
Application: A212943 | Product #001
Applicant: AJANTA PHARMA LTD
Approved: Jun 1, 2021 | RLD: No | RS: No | Type: DISCN